FAERS Safety Report 9284152 (Version 2)
Quarter: 2013Q2

REPORT INFORMATION
  Report Type: Report from Study
  Country: CA (occurrence: CA)
  Receive Date: 20130510
  Receipt Date: 20130516
  Transmission Date: 20140414
  Serious: Yes (Hospitalization, Other)
  Sender: FDA-Public Use
  Company Number: CA-JNJFOC-20130502924

PATIENT
  Age: 51 Year
  Sex: Female
  Weight: 64 kg

DRUGS (21)
  1. REMICADE [Suspect]
     Indication: ARTHRITIS ENTEROPATHIC
     Route: 042
     Dates: start: 2007
  2. PANTOLOC [Concomitant]
     Route: 065
  3. MIRTAZAPINE [Concomitant]
     Route: 065
  4. CYMBALTA [Concomitant]
     Route: 065
  5. VITAMIN D3 [Concomitant]
     Route: 065
  6. FOLIC ACID [Concomitant]
     Route: 065
  7. MOBICOX [Concomitant]
     Route: 065
  8. OMEGA 3 [Concomitant]
     Route: 065
  9. CALCIUM CARBONATE [Concomitant]
     Route: 065
  10. DOMPERIDONE [Concomitant]
     Route: 065
  11. LACTULOSE [Concomitant]
     Route: 065
  12. VITAMIN B [Concomitant]
     Route: 065
  13. HYDROMORPH CONTIN [Concomitant]
     Route: 065
  14. LYRICA [Concomitant]
     Route: 065
  15. METHOTREXATE [Concomitant]
     Route: 058
  16. ONDANSETRON [Concomitant]
     Route: 065
  17. VENTOLIN [Concomitant]
     Route: 065
  18. DILAUDID [Concomitant]
     Route: 065
  19. HYDROMORPH [Concomitant]
     Route: 065
  20. TEMAZEPAM [Concomitant]
     Route: 065
  21. ADVAIR DISKUS [Concomitant]
     Route: 065

REACTIONS (7)
  - Oxygen saturation decreased [Unknown]
  - Fistula [Not Recovered/Not Resolved]
  - Dyspnoea [Unknown]
  - Tachycardia [Unknown]
  - Intestinal obstruction [Unknown]
  - Arthropathy [Recovering/Resolving]
  - Hypotension [Unknown]
